FAERS Safety Report 5532808-3 (Version None)
Quarter: 2007Q4

REPORT INFORMATION
  Report Type: 
  Country: None (occurrence: None)
  Receive Date: 20071130
  Receipt Date: 20071130
  Transmission Date: 20080405
  Serious: Yes (Hospitalization, Disabling)
  Sender: FDA-Public Use
  Company Number: None

PATIENT
  Age: 79 Year
  Sex: Female
  Weight: 63 kg

DRUGS (12)
  1. NITROFURANTOIN [Suspect]
     Indication: URINARY TRACT INFECTION
     Dosage: 100MG TWICE DAILY PO
     Route: 048
     Dates: start: 20070920, end: 20071004
  2. ESOMEPRAZOLE [Concomitant]
  3. OXYBUTYNIN CHLORIDE [Concomitant]
  4. HYDROCHLOROTHIAZIDE [Concomitant]
  5. ASPIRIN [Concomitant]
  6. CHLORDIAZEPOXIDE [Concomitant]
  7. VALSARTAN [Concomitant]
  8. ATORVASTATIN [Concomitant]
  9. GLUCOSAMINE/CHONDROITIN [Concomitant]
  10. CALCIUM SUPPLEMENT [Concomitant]
  11. VITAMIN D [Concomitant]
  12. ALENDRONATE SODIUM [Concomitant]

REACTIONS (7)
  - ASTHENIA [None]
  - BLOOD CREATININE INCREASED [None]
  - BLOOD UREA INCREASED [None]
  - CHILLS [None]
  - HEPATITIS [None]
  - PAIN [None]
  - PRURITUS [None]
